FAERS Safety Report 7919249-6 (Version None)
Quarter: 2011Q4

REPORT INFORMATION
  Report Type: 
  Country: None (occurrence: None)
  Receive Date: 20111116
  Receipt Date: 20111116
  Transmission Date: 20120403
  Serious: No
  Sender: FDA-Public Use
  Company Number: None

PATIENT
  Age: 26 Year
  Sex: Male

DRUGS (2)
  1. VALPROIC ACID [Suspect]
     Dates: start: 19910101, end: 20100126
  2. PHENYTOIN [Suspect]
     Dates: start: 19910101, end: 20100126

REACTIONS (12)
  - ATRIAL FIBRILLATION [None]
  - ISCHAEMIC HEPATITIS [None]
  - HEPATOMEGALY [None]
  - LIVER INJURY [None]
  - HYPOTENSION [None]
  - HAEMODYNAMIC INSTABILITY [None]
  - TRANSFUSION-RELATED ACUTE LUNG INJURY [None]
  - INTERNATIONAL NORMALISED RATIO INCREASED [None]
  - RENAL FAILURE ACUTE [None]
  - HEPATITIS ACUTE [None]
  - URINARY TRACT INFECTION [None]
  - HYPERNATRAEMIA [None]
